FAERS Safety Report 24527280 (Version 1)
Quarter: 2024Q4

REPORT INFORMATION
  Report Type: Report from Study
  Country: US (occurrence: US)
  Receive Date: 20241021
  Receipt Date: 20241021
  Transmission Date: 20250115
  Serious: No
  Sender: ROCHE
  Company Number: US-ROCHE-3537102

PATIENT
  Age: 61 Year
  Sex: Male
  Weight: 76.2 kg

DRUGS (8)
  1. COTELLIC [Suspect]
     Active Substance: COBIMETINIB
     Indication: Craniopharyngioma
     Dosage: X 21 DAYS, 7 DAYS OFF
     Route: 065
     Dates: start: 20231204
  2. COTELLIC [Suspect]
     Active Substance: COBIMETINIB
     Indication: Pituitary tumour
  3. ZELBORAF [Suspect]
     Active Substance: VEMURAFENIB
     Indication: Craniopharyngioma
     Dosage: EVERY 28 DAYS
     Route: 065
     Dates: start: 20231204
  4. ZELBORAF [Suspect]
     Active Substance: VEMURAFENIB
     Indication: Pituitary tumour
  5. METFORMIN [Concomitant]
     Active Substance: METFORMIN HYDROCHLORIDE
  6. UREA [Concomitant]
     Active Substance: UREA
  7. OXYCODONE [Concomitant]
     Active Substance: OXYCODONE
  8. LASIX [Concomitant]
     Active Substance: FUROSEMIDE

REACTIONS (3)
  - Hyperglycaemia [Unknown]
  - Hyponatraemia [Unknown]
  - Off label use [Unknown]

NARRATIVE: CASE EVENT DATE: 20231204
